FAERS Safety Report 13353326 (Version 3)
Quarter: 2017Q2

REPORT INFORMATION
  Report Type: Spontaneous
  Country: GR (occurrence: GR)
  Receive Date: 20170321
  Receipt Date: 20170417
  Transmission Date: 20170830
  Serious: Yes (Death, Other)
  Sender: FDA-Public Use
  Company Number: GR-ROCHE-1905365

PATIENT
  Age: 77 Year
  Sex: Male

DRUGS (1)
  1. HERCEPTIN [Suspect]
     Active Substance: TRASTUZUMAB
     Indication: COLORECTAL CANCER METASTATIC
     Dosage: LAST DOSE WAS ADMINISTERED ON 02/FEB/2017.
     Route: 065

REACTIONS (6)
  - Acute interstitial pneumonitis [Fatal]
  - Dyspnoea [Not Recovered/Not Resolved]
  - Cough [Not Recovered/Not Resolved]
  - Pulmonary toxicity [Fatal]
  - Respiratory failure [Fatal]
  - Off label use [Fatal]
